FAERS Safety Report 12571126 (Version 1)
Quarter: 2016Q3

REPORT INFORMATION
  Report Type: Spontaneous
  Country: DE (occurrence: DE)
  Receive Date: 20160719
  Receipt Date: 20160719
  Transmission Date: 20161109
  Serious: Yes (Hospitalization)
  Sender: FDA-Public Use
  Company Number: DE-MYLANLABS-2016M1028755

PATIENT

DRUGS (8)
  1. LORAZEPAM. [Suspect]
     Active Substance: LORAZEPAM
     Dosage: 0.5 MG, UNK
     Route: 048
     Dates: start: 20160609, end: 20160609
  2. RANEXA [Concomitant]
     Active Substance: RANOLAZINE
     Dosage: 750 MG, UNK
     Route: 048
  3. GABAPENTIN. [Concomitant]
     Active Substance: GABAPENTIN
     Dosage: 700 MG, UNK
     Route: 048
     Dates: start: 20160609, end: 20160609
  4. CLONIDIN [Concomitant]
     Active Substance: CLONIDINE
     Dosage: 150 ?G, UNK
  5. ENALAPRIL [Concomitant]
     Active Substance: ENALAPRIL
     Dosage: 15 MG, UNK
     Route: 048
  6. SIMVASTATIN. [Concomitant]
     Active Substance: SIMVASTATIN
     Dosage: UNK
     Route: 048
  7. SERTRALINE [Concomitant]
     Active Substance: SERTRALINE HYDROCHLORIDE
     Dosage: 50 MG, UNK
     Route: 048
     Dates: start: 20160609, end: 20160609
  8. QUETIAPIN [Concomitant]
     Active Substance: QUETIAPINE
     Dosage: 150 MG, UNK
     Route: 048
     Dates: start: 20160609, end: 20160609

REACTIONS (2)
  - Torticollis [Recovered/Resolved]
  - Dystonia [Recovered/Resolved]

NARRATIVE: CASE EVENT DATE: 20160609
